FAERS Safety Report 9593101 (Version 3)
Quarter: 2013Q4

REPORT INFORMATION
  Report Type: Spontaneous
  Country: US (occurrence: US)
  Receive Date: 20131004
  Receipt Date: 20131010
  Transmission Date: 20140711
  Serious: Yes (Other)
  Sender: FDA-Public Use
  Company Number: US-PERRIGO-13US010117

PATIENT
  Age: 45 Year
  Sex: Female

DRUGS (3)
  1. ACETAMINOPHEN-ASPIRIN-CAFFEINE 1T1 [Suspect]
     Indication: MIGRAINE
     Dosage: UNK, PRN
     Route: 048
     Dates: start: 20130920, end: 20130925
  2. ACETAMINOPHEN-ASPIRIN-CAFFEINE 1T1 [Suspect]
     Dosage: UNK, PRN
     Route: 048
     Dates: start: 201210, end: 20130919
  3. ANTIMIGRAINE PREPARATIONS [Concomitant]
     Indication: MIGRAINE
     Dosage: UNK, UNK
     Route: 065

REACTIONS (5)
  - Somnolence [Recovering/Resolving]
  - Feeling abnormal [Recovered/Resolved]
  - Vomiting [Recovering/Resolving]
  - Nausea [Recovering/Resolving]
  - Drug ineffective [Unknown]
